FAERS Safety Report 5417910-9 (Version None)
Quarter: 2007Q3

REPORT INFORMATION
  Report Type: 
  Country: None (occurrence: None)
  Receive Date: 20070815
  Receipt Date: 20070801
  Transmission Date: 20080115
  Serious: Yes (Hospitalization)
  Sender: FDA-Public Use
  Company Number: PAR_01679_2007

PATIENT
  Age: 18 Month
  Sex: Female

DRUGS (2)
  1. IBUPROFEN [Suspect]
     Indication: PYREXIA
     Dosage: (TWICE)
  2. IBUPROFEN [Suspect]
     Indication: RHINITIS
     Dosage: (TWICE)

REACTIONS (3)
  - GASTRIC MUCOSAL HYPERTROPHY [None]
  - GASTRIC ULCER HAEMORRHAGE [None]
  - GASTRITIS [None]
